FAERS Safety Report 11209196 (Version 1)
Quarter: 2015Q2

REPORT INFORMATION
  Report Type: Spontaneous
  Country: TR (occurrence: TR)
  Receive Date: 20150622
  Receipt Date: 20150622
  Transmission Date: 20150821
  Serious: Yes (Death, Hospitalization, Other)
  Sender: FDA-Public Use
  Company Number: PHHY2015TR070722

PATIENT
  Age: 53 Year
  Sex: Female

DRUGS (1)
  1. LEVOFLOXACIN. [Suspect]
     Active Substance: LEVOFLOXACIN
     Indication: LOWER RESPIRATORY TRACT INFECTION
     Dosage: 750 MG, QD
     Route: 065

REACTIONS (17)
  - Confusional state [Fatal]
  - Cardio-respiratory arrest [Fatal]
  - Jaundice [Fatal]
  - Skin exfoliation [Recovered/Resolved]
  - Dyspnoea [Fatal]
  - Pruritus [Recovered/Resolved]
  - Vomiting [Fatal]
  - Abdominal pain [Fatal]
  - Generalised oedema [Fatal]
  - Erythema [Recovered/Resolved]
  - Hypotension [Fatal]
  - Hypoglycaemia [Fatal]
  - Rash [Recovered/Resolved]
  - Hepatitis [Fatal]
  - Multi-organ failure [Fatal]
  - Cough [Fatal]
  - Yellow skin [Fatal]
